FAERS Safety Report 17786860 (Version 2)
Quarter: 2024Q3

REPORT INFORMATION
  Report Type: Spontaneous
  Country: ES (occurrence: ES)
  Receive Date: 20200514
  Receipt Date: 20240715
  Transmission Date: 20241016
  Serious: Yes (Hospitalization, Other)
  Sender: MYLAN
  Company Number: ES-009507513-2003ESP007672

PATIENT
  Age: 58 Year
  Sex: Male

DRUGS (8)
  1. LINEZOLID [Suspect]
     Active Substance: LINEZOLID
     Indication: Endocarditis
     Dosage: UNK
     Route: 065
     Dates: start: 20200211
  2. SULFAMETHOXAZOLE\TRIMETHOPRIM [Suspect]
     Active Substance: SULFAMETHOXAZOLE\TRIMETHOPRIM
     Indication: Endocarditis
     Dosage: UNK
     Route: 065
  3. RIFAMPIN [Suspect]
     Active Substance: RIFAMPIN
     Indication: Endocarditis
     Dosage: UNK
     Route: 065
  4. MEROPENEM [Suspect]
     Active Substance: MEROPENEM
     Indication: Endocarditis
     Dosage: UNK
     Route: 065
     Dates: start: 20200211
  5. CEFTAZIDIME [Suspect]
     Active Substance: CEFTAZIDIME
     Indication: Endocarditis
     Dosage: UNK
     Route: 065
  6. AMIKACIN [Suspect]
     Active Substance: AMIKACIN
     Indication: Endocarditis
     Dosage: UNK
     Route: 065
  7. CUBICIN [Suspect]
     Active Substance: DAPTOMYCIN
     Indication: Endocarditis
     Dosage: UNK
     Route: 065
     Dates: start: 20200117, end: 202002
  8. IMIPENEM [Suspect]
     Active Substance: IMIPENEM
     Indication: Endocarditis
     Dosage: UNK
     Route: 065

REACTIONS (16)
  - Multiple organ dysfunction syndrome [Recovered/Resolved]
  - Vascular pseudoaneurysm thrombosis [Unknown]
  - Cardiac valve vegetation [Unknown]
  - Anaemia [Recovered/Resolved]
  - Hepatic lesion [Unknown]
  - Bradyphrenia [Unknown]
  - Embolic cerebral infarction [Unknown]
  - Nocardiosis [Unknown]
  - Brain abscess [Unknown]
  - Haemoperitoneum [Unknown]
  - Wound drainage [Unknown]
  - Cardiac operation [Unknown]
  - Thrombocytopenia [Recovered/Resolved]
  - Shock haemorrhagic [Unknown]
  - Adverse event [Unknown]
  - Hepatic haemorrhage [Unknown]

NARRATIVE: CASE EVENT DATE: 20200128
